FAERS Safety Report 4765872-X (Version None)
Quarter: 2005Q3

REPORT INFORMATION
  Report Type: 
  Country: None (occurrence: None)
  Receive Date: 20050907
  Receipt Date: 20010227
  Transmission Date: 20060218
  Serious: Yes (Death)
  Sender: FDA-Public Use
  Company Number: 2005-132093-NL

PATIENT
  Age: 74 Year
  Sex: Female

DRUGS (17)
  1. ROCURONIUM BROMIDE [Suspect]
     Dates: start: 20010227
  2. MIDAZOLAM [Suspect]
     Indication: SENSORY DISTURBANCE
     Dosage: 3 MG ONCE
     Dates: start: 20010227
  3. FENTANYL [Suspect]
     Indication: SENSORY DISTURBANCE
     Dosage: 100 UG ONCE
     Dates: start: 20050227
  4. ONDANSETRON HYDROCHLORIDE [Suspect]
     Indication: SENSORY DISTURBANCE
     Dosage: 4 MG ONCE
     Dates: start: 20050227
  5. PROPOFOL [Suspect]
     Dosage: 200 MG ONCE
     Dates: start: 20010227
  6. LIGNOCAINE [Suspect]
     Dosage: DF
     Dates: start: 20010227
  7. IRBESARTAN [Concomitant]
  8. INDAPAMIDE [Concomitant]
  9. PRAVASTATIN SODIUM [Concomitant]
  10. BETHAHISTINE HYDROCHLORIDE [Concomitant]
  11. PIROXICAM [Concomitant]
  12. OXYGEN [Concomitant]
  13. NITROUS OXIDE [Concomitant]
  14. ISOFLURANE [Concomitant]
  15. HEPARIN [Concomitant]
  16. IRBESARTAN [Concomitant]
  17. TERBUTALINE SULFATE [Concomitant]

REACTIONS (9)
  - ANAPHYLACTOID REACTION [None]
  - ANGIONEUROTIC OEDEMA [None]
  - BRADYCARDIA [None]
  - BRONCHOSPASM [None]
  - CARDIAC ARREST [None]
  - COUGH [None]
  - ELECTROCARDIOGRAM ST SEGMENT DEPRESSION [None]
  - HYPOTENSION [None]
  - HYPOXIA [None]
